FAERS Safety Report 4357231-9 (Version None)
Quarter: 2004Q2

REPORT INFORMATION
  Report Type: 
  Country: None (occurrence: None)
  Receive Date: 20040507
  Receipt Date: 20040420
  Transmission Date: 20050107
  Serious: Yes (Hospitalization)
  Sender: FDA-Public Use
  Company Number: US_0404102390

PATIENT
  Age: 61 Year
  Sex: Male
  Weight: 104 kg

DRUGS (5)
  1. PEMETREXED [Suspect]
     Indication: COLON CANCER METASTATIC
     Dosage: 1165 MG
     Dates: start: 20040309
  2. IRINOTECAN [Suspect]
     Indication: COLON CANCER METASTATIC
     Dosage: 699 MG
     Dates: start: 20040309
  3. EMEND (EMEND) [Concomitant]
  4. DECADRON [Concomitant]
  5. FOLIC ACID [Concomitant]

REACTIONS (3)
  - HAEMATEMESIS [None]
  - MALLORY-WEISS SYNDROME [None]
  - VOMITING [None]
